FAERS Safety Report 4787464-9 (Version None)
Quarter: 2005Q4

REPORT INFORMATION
  Report Type: 
  Country: None (occurrence: None)
  Receive Date: 20051003
  Receipt Date: 20050916
  Transmission Date: 20060501
  Serious: Yes (Hospitalization)
  Sender: FDA-Public Use
  Company Number: 218113

PATIENT
  Age: 64 Year
  Sex: Female
  Weight: 85 kg

DRUGS (2)
  1. HERCEPTIN [Suspect]
     Indication: BREAST CANCER
     Dosage: 4 MG/KG, SINGLE, INTRAVENOUS; 6 MG/KG, Q3W, INTRAVENOUS
     Route: 042
     Dates: start: 20040709, end: 20040709
  2. HERCEPTIN [Suspect]
     Indication: BREAST CANCER
     Dosage: 4 MG/KG, SINGLE, INTRAVENOUS; 6 MG/KG, Q3W, INTRAVENOUS
     Route: 042
     Dates: end: 20050914

REACTIONS (1)
  - PULMONARY FIBROSIS [None]
